FAERS Safety Report 25025045 (Version 1)
Quarter: 2025Q1

REPORT INFORMATION
  Report Type: Spontaneous
  Country: US (occurrence: None)
  Receive Date: 20250228
  Receipt Date: 20250228
  Transmission Date: 20250408
  Serious: Yes (Hospitalization)
  Sender: FDA-CTU
  Company Number: None

PATIENT
  Age: 61 Year
  Sex: Male
  Weight: 115.6 kg

DRUGS (3)
  1. TIRZEPATIDE [Suspect]
     Active Substance: TIRZEPATIDE
     Indication: Weight decreased
     Dates: start: 20250227, end: 20250227
  2. TIRZEPATIDE [Suspect]
     Active Substance: TIRZEPATIDE
     Indication: Diabetes mellitus
  3. Tirzepatide (Mounjaro) 2.5mg pen [Concomitant]
     Dates: start: 20250227, end: 20250227

REACTIONS (2)
  - Mania [None]
  - Mental disorder [None]

NARRATIVE: CASE EVENT DATE: 20250227
